FAERS Safety Report 7210663-3 (Version None)
Quarter: 2010Q4

REPORT INFORMATION
  Report Type: 
  Country: None (occurrence: None)
  Receive Date: 20101223
  Receipt Date: 20101207
  Transmission Date: 20110411
  Serious: Yes (Death)
  Sender: FDA-Public Use
  Company Number: FKO201000556

PATIENT
  Age: 85 Year
  Sex: Female

DRUGS (7)
  1. IRINOTECAN 20 MG/ML CONCENTRATE FOR SOLUTION FOR INFUSION (IRINOTECAN [Suspect]
     Indication: COLON CANCER METASTATIC
     Dosage: 21.4286 MG (150 MG, 1 IN 1 WK INTRAVENOUS
     Route: 042
     Dates: start: 20100126
  2. LANSOPRAZOLE [Concomitant]
  3. SELOKEN (METOPROLOL TARTRATE) (METOPROLOL TARTRATE) [Concomitant]
  4. COTAREG (CO-DIOVAN) (CO-DIOVAN) [Concomitant]
  5. ESAPENT (OMEGA-3 TRIGLYCERIDES) (OMEGA-3 TRIGLYCERIDES) [Concomitant]
  6. CARDIRENE (ACETYLSALICYLATE LYSINE (ACETYLSALICYLATE LYSINE) [Concomitant]
  7. TORVAST (ATORVASTATIN CALCIUM) (ATORVASTATIN CALCIUM) [Concomitant]

REACTIONS (4)
  - CONDITION AGGRAVATED [None]
  - MUCOSAL INFLAMMATION [None]
  - NEUTROPENIA [None]
  - SEPSIS [None]
